FAERS Safety Report 23423184 (Version 1)
Quarter: 2024Q1

REPORT INFORMATION
  Report Type: Spontaneous
  Country: US (occurrence: US)
  Receive Date: 20240119
  Receipt Date: 20240119
  Transmission Date: 20240410
  Serious: No
  Sender: FDA-Public Use
  Company Number: US-Prasco Laboratories-PRAS20240014

PATIENT
  Age: 73 Year
  Sex: Female

DRUGS (2)
  1. ESTRADIOL [Suspect]
     Active Substance: ESTRADIOL
     Indication: Atrophic vulvovaginitis
     Dosage: 0.5 G
     Route: 067
     Dates: start: 202311, end: 202401
  2. ESTRADIOL [Suspect]
     Active Substance: ESTRADIOL
     Indication: Cystitis
     Dosage: SOMETIMES REDUCES TO PEA-SIZED PORTION
     Route: 067
     Dates: start: 202311, end: 202401

REACTIONS (4)
  - Cystitis [Recovering/Resolving]
  - Drug ineffective for unapproved indication [Recovering/Resolving]
  - Off label use [None]
  - Product substitution issue [None]

NARRATIVE: CASE EVENT DATE: 20240101
